FAERS Safety Report 13877554 (Version 1)
Quarter: 2017Q3

REPORT INFORMATION
  Report Type: Spontaneous
  Country: IN (occurrence: IN)
  Receive Date: 20170817
  Receipt Date: 20170817
  Transmission Date: 20171127
  Serious: Yes (Other)
  Sender: FDA-Public Use
  Company Number: IN-PFIZER INC-2016148015

PATIENT
  Age: 23 Year
  Sex: Male

DRUGS (4)
  1. DYNAPAR [Concomitant]
     Active Substance: DICLOFENAC SODIUM
     Dosage: UNK, 2X/DAY
     Route: 030
  2. GENTAMICIN. [Suspect]
     Active Substance: GENTAMICIN
     Dosage: 80 MG, 2X/DAY
     Route: 042
  3. CEFOPERAZONE SODIUM/SULBACTAM SODIUM [Suspect]
     Active Substance: CEFOPERAZONE SODIUM\SULBACTAM SODIUM
     Dosage: UNK
     Route: 042
  4. METRONIDAZOLE. [Suspect]
     Active Substance: METRONIDAZOLE
     Dosage: 100 MG, 3X/DAY

REACTIONS (2)
  - Urinary tract infection [Recovered/Resolved]
  - Multiple-drug resistance [Recovered/Resolved]
